FAERS Safety Report 4347870-3 (Version None)
Quarter: 2004Q2

REPORT INFORMATION
  Report Type: 
  Country: None (occurrence: None)
  Receive Date: 20040426
  Receipt Date: 20040426
  Transmission Date: 20050107
  Serious: Yes (Other)
  Sender: FDA-Public Use
  Company Number: None

PATIENT
  Age: 68 Year
  Sex: Female

DRUGS (2)
  1. METFORMIN ER 500 MG APOTEX/TORPHARM [Suspect]
     Indication: DIABETES MELLITUS
     Dosage: 3 TABLETS BY MOUTH DAILY
     Route: 048
     Dates: start: 20040223
  2. AMARYL [Concomitant]

REACTIONS (2)
  - BLOOD GLUCOSE INCREASED [None]
  - PHARMACEUTICAL PRODUCT COMPLAINT [None]
